FAERS Safety Report 18529358 (Version 1)
Quarter: 2020Q4

REPORT INFORMATION
  Report Type: Report from Study
  Country: CA (occurrence: CA)
  Receive Date: 20201120
  Receipt Date: 20201120
  Transmission Date: 20210114
  Serious: Yes (Other)
  Sender: FDA-Public Use
  Company Number: CA-TAKEDA-2020TUS048242

PATIENT
  Age: 24 Year
  Sex: Female

DRUGS (4)
  1. CORTISONE [Concomitant]
     Active Substance: CORTISONE
     Indication: PSORIASIS
     Dosage: UNK, QD
     Route: 061
  2. HYDROXYZINE [Concomitant]
     Active Substance: HYDROXYZINE HYDROCHLORIDE
     Dosage: UNK
     Route: 048
  3. VEDOLIZUMAB [Suspect]
     Active Substance: VEDOLIZUMAB
     Indication: COLITIS ULCERATIVE
     Dosage: 300 MILLIGRAM
     Route: 042
     Dates: start: 20180209
  4. PURINETHOL [Concomitant]
     Active Substance: MERCAPTOPURINE
     Dosage: UNK UNK, QD
     Dates: start: 2008

REACTIONS (3)
  - Abdominal pain [Unknown]
  - Haematochezia [Unknown]
  - Ear infection [Recovered/Resolved]
